FAERS Safety Report 7624571-7 (Version None)
Quarter: 2011Q3

REPORT INFORMATION
  Report Type: 
  Country: None (occurrence: None)
  Receive Date: 20110720
  Receipt Date: 20090114
  Transmission Date: 20111222
  Serious: Yes (Hospitalization, Other)
  Sender: FDA-Public Use
  Company Number: US-BAYER-200916238NA

PATIENT
  Age: 50 Year
  Sex: Male
  Weight: 70.748 kg

DRUGS (22)
  1. TRASYLOL [Suspect]
     Indication: PRODUCT USED FOR UNKNOWN INDICATION
     Dosage: 100 CC LOADING DOSE
     Route: 042
     Dates: start: 20020710, end: 20020710
  2. PEPCID [Concomitant]
     Dosage: 20 MG, QD
     Route: 048
  3. TRASYLOL [Suspect]
     Indication: MITRAL VALVE REPLACEMENT
     Dosage: 25 CC/HOUR
     Route: 042
     Dates: start: 20020710, end: 20020710
  4. PROTAMINE SULFATE [Concomitant]
     Dosage: 250 MG, UNK
     Route: 042
     Dates: start: 20020710
  5. LASIX [Concomitant]
     Dosage: 20 MG, UNK
     Route: 042
     Dates: start: 20020710
  6. CONTRAST MEDIA [Concomitant]
     Indication: COMPUTERISED TOMOGRAM
     Dosage: UNK
     Dates: start: 20020709
  7. HEPARIN [Concomitant]
     Dosage: 40000 U, UNK
     Route: 042
     Dates: start: 20020710
  8. ISOFURANE [Concomitant]
     Dosage: UNK
     Route: 042
     Dates: start: 20020710
  9. LOVENOX [Concomitant]
     Dosage: 70 MG, BID
     Route: 058
     Dates: start: 20020708
  10. DILTIAZEM [Concomitant]
     Dosage: 40 MG, QD
     Route: 048
  11. ANCEF [Concomitant]
     Dosage: 1 G, UNK
     Route: 042
     Dates: start: 20020710
  12. THEOPHYLLINE [Concomitant]
     Dosage: 300 MG, QD
     Route: 048
  13. FENTANYL-100 [Concomitant]
     Dosage: 0.5 MG, UNK
     Route: 042
     Dates: start: 20020710
  14. PLATELETS [Concomitant]
     Dosage: 10 PACKS
     Route: 042
  15. TRASYLOL [Suspect]
     Indication: AORTIC SURGERY
  16. EPINEPHRINE [Concomitant]
     Dosage: UNK
     Route: 042
     Dates: start: 20020710
  17. NITROGLYCERIN [Concomitant]
     Dosage: UNK
     Route: 042
     Dates: start: 20020710
  18. ACETYLSALICYLIC ACID SRT [Concomitant]
     Dosage: 81 MG, QD
     Route: 048
  19. PHENYLEPHRINE HCL [Concomitant]
     Dosage: UNK
     Route: 042
     Dates: start: 20020710
  20. VERSED [Concomitant]
     Dosage: 2 MG, UNK
     Route: 042
     Dates: start: 20020710
  21. NORMOSOL [Concomitant]
     Dosage: UNK
     Route: 042
     Dates: start: 20020710
  22. RED BLOOD CELLS [Concomitant]
     Dosage: 3 U, UNK
     Route: 042

REACTIONS (13)
  - MULTI-ORGAN FAILURE [None]
  - FEAR [None]
  - RENAL FAILURE [None]
  - RENAL INJURY [None]
  - STRESS [None]
  - INJURY [None]
  - RENAL IMPAIRMENT [None]
  - EMOTIONAL DISTRESS [None]
  - ANXIETY [None]
  - UNEVALUABLE EVENT [None]
  - ANHEDONIA [None]
  - CEREBROVASCULAR ACCIDENT [None]
  - PAIN [None]
